FAERS Safety Report 13655614 (Version 1)
Quarter: 2017Q2

REPORT INFORMATION
  Report Type: Spontaneous
  Country: US (occurrence: US)
  Receive Date: 20170614
  Receipt Date: 20170614
  Transmission Date: 20170830
  Serious: Yes (Disabling)
  Sender: FDA-Public Use
  Company Number: None

PATIENT
  Age: 50 Year
  Sex: Female
  Weight: 52.2 kg

DRUGS (8)
  1. TYLENOL WITH CODEINE [Concomitant]
     Active Substance: ACETAMINOPHEN\CODEINE PHOSPHATE
  2. FLUCONAZOL [Concomitant]
     Active Substance: FLUCONAZOLE
  3. TRIAMCINOLONE [Concomitant]
     Active Substance: TRIAMCINOLONE
  4. SENA (SENNOSIDE A+B) [Concomitant]
     Active Substance: SENNOSIDES A AND B
  5. XANAX [Concomitant]
     Active Substance: ALPRAZOLAM
  6. WALKER SEAT [Concomitant]
     Active Substance: DEVICE
  7. CANABIS LOTION [Concomitant]
  8. CIPROFLOXACIN. [Suspect]
     Active Substance: CIPROFLOXACIN
     Indication: URINARY TRACT INFECTION
     Dosage: ?          QUANTITY:18 CAPSULE(S);?
     Route: 048
     Dates: start: 20100708, end: 20110316

REACTIONS (19)
  - Feeling abnormal [None]
  - Fungal infection [None]
  - Pruritus [None]
  - Hyperaesthesia [None]
  - Hypoaesthesia [None]
  - Myalgia [None]
  - Temperature intolerance [None]
  - Muscle twitching [None]
  - Visual impairment [None]
  - Fatigue [None]
  - Foot deformity [None]
  - Pain in extremity [None]
  - Mental disorder [None]
  - Tremor [None]
  - Muscle spasms [None]
  - Impaired work ability [None]
  - Paraesthesia [None]
  - Anxiety [None]
  - Muscular weakness [None]

NARRATIVE: CASE EVENT DATE: 20101122
